FAERS Safety Report 26106891 (Version 2)
Quarter: 2025Q4

REPORT INFORMATION
  Report Type: Spontaneous
  Country: AR (occurrence: AR)
  Receive Date: 20251201
  Receipt Date: 20251215
  Transmission Date: 20260119
  Serious: Yes (Other)
  Sender: SANDOZ
  Company Number: AR-002147023-NVSC2025AR171482

PATIENT
  Sex: Female

DRUGS (4)
  1. FULVESTRANT [Suspect]
     Active Substance: FULVESTRANT
     Indication: Breast cancer metastatic
     Dosage: UNK UNK, 28D
     Route: 065
     Dates: start: 20241104
  2. KISQALI [Suspect]
     Active Substance: RIBOCICLIB SUCCINATE
     Indication: Breast cancer metastatic
     Dosage: 600 MG, QD
     Route: 048
     Dates: start: 20241104
  3. ZOLEDRONIC ACID [Suspect]
     Active Substance: ZOLEDRONIC ACID
     Indication: Breast cancer metastatic
     Dosage: UNK UNK, 28D
     Route: 065
     Dates: start: 20241104
  4. DENOSUMAB [Concomitant]
     Active Substance: DENOSUMAB
     Indication: Product used for unknown indication
     Dosage: UNK, UNKNOWN
     Route: 065

REACTIONS (47)
  - Gallbladder enlargement [Unknown]
  - Colon dysplasia [Unknown]
  - Vitiligo [Unknown]
  - Lipoma [Unknown]
  - Soft tissue disorder [Unknown]
  - Cyst [Unknown]
  - Mean cell haemoglobin increased [Recovered/Resolved]
  - Cutaneous calcification [Unknown]
  - Platelet count increased [Recovered/Resolved]
  - Serum ferritin increased [Unknown]
  - C-telopeptide decreased [Unknown]
  - Lymphatic disorder [Unknown]
  - Ill-defined disorder [Unknown]
  - Haematoma [Unknown]
  - Red cell distribution width increased [Unknown]
  - Neutrophil count increased [Recovered/Resolved]
  - Blood phosphorus increased [Unknown]
  - Scar [Unknown]
  - Large intestine polyp [Unknown]
  - Thyroid mass [Unknown]
  - White blood cell count decreased [Recovered/Resolved]
  - Fat necrosis [Unknown]
  - Basophil count increased [Recovered/Resolved]
  - Haematocrit decreased [Recovered/Resolved]
  - Haemoglobin urine present [Unknown]
  - Lymphocyte count decreased [Recovered/Resolved]
  - Thyroid cyst [Unknown]
  - Pleural adhesion [Unknown]
  - C-reactive protein increased [Unknown]
  - White blood cell count decreased [Recovered/Resolved]
  - Osteocalcin decreased [Unknown]
  - Thyroid calcification [Unknown]
  - Colorectal adenoma [Unknown]
  - Haemoglobin decreased [Recovered/Resolved]
  - Red blood cell count decreased [Recovered/Resolved]
  - Erythema [Unknown]
  - Osteoporosis [Unknown]
  - Gingival pain [Unknown]
  - Dental root perforation [Unknown]
  - Iron deficiency [Unknown]
  - Dental discomfort [Unknown]
  - Pain in extremity [Unknown]
  - Pulpitis dental [Unknown]
  - Sensitive skin [Unknown]
  - Vitamin D deficiency [Recovered/Resolved]
  - Red blood cell sedimentation rate increased [Unknown]
  - Tooth disorder [Unknown]

NARRATIVE: CASE EVENT DATE: 20250101
